FAERS Safety Report 9791182 (Version 1)
Quarter: 2013Q4

REPORT INFORMATION
  Report Type: Spontaneous
  Country: IN (occurrence: IN)
  Receive Date: 20131231
  Receipt Date: 20131231
  Transmission Date: 20140711
  Serious: Yes (Other)
  Sender: FDA-Public Use
  Company Number: PHHY2013IN153451

PATIENT
  Age: 6 Year
  Sex: Male

DRUGS (1)
  1. PREDNISOLONE [Suspect]
     Route: 061

REACTIONS (3)
  - Cataract [Unknown]
  - Visual impairment [Recovering/Resolving]
  - Pupillary light reflex tests abnormal [Recovering/Resolving]
